FAERS Safety Report 6093244-7 (Version None)
Quarter: 2009Q1

REPORT INFORMATION
  Report Type: 
  Country: None (occurrence: None)
  Receive Date: 20090223
  Receipt Date: 20090217
  Transmission Date: 20090719
  Serious: Yes (Death, Other)
  Sender: FDA-Public Use
  Company Number: 2008JP005788

PATIENT
  Age: 44 Year
  Sex: Male
  Weight: 80 kg

DRUGS (3)
  1. FUNGUARD (MICAFUNGIN) INJECTION [Suspect]
     Indication: FUNGAEMIA
     Dosage: 150 MG UID/QD, IV DRIP
     Route: 041
     Dates: start: 20080818, end: 20080825
  2. MEROPEN (MEROPENEM) INJECTION [Suspect]
     Indication: SEPSIS
     Dosage: 0.5 G BID IV DRIP
     Route: 041
     Dates: start: 20080818, end: 20080825
  3. GANCICLOVIR [Concomitant]

REACTIONS (5)
  - ALANINE AMINOTRANSFERASE INCREASED [None]
  - ASPARTATE AMINOTRANSFERASE INCREASED [None]
  - CYTOMEGALOVIRUS INFECTION [None]
  - ENCEPHALITIS VIRAL [None]
  - LIVER DISORDER [None]
